FAERS Safety Report 12942996 (Version 3)
Quarter: 2017Q2

REPORT INFORMATION
  Report Type: Report from Study
  Country: US (occurrence: US)
  Receive Date: 20161115
  Receipt Date: 20170427
  Transmission Date: 20170830
  Serious: No
  Sender: FDA-Public Use
  Company Number: PHEH2016US029732

PATIENT
  Sex: Male

DRUGS (3)
  1. LEUCOVORIN. [Concomitant]
     Active Substance: LEUCOVORIN
     Indication: PRODUCT USED FOR UNKNOWN INDICATION
     Route: 065
  2. METHOTREXATE. [Concomitant]
     Active Substance: METHOTREXATE
     Indication: PRODUCT USED FOR UNKNOWN INDICATION
     Route: 065
  3. COSENTYX [Suspect]
     Active Substance: SECUKINUMAB
     Indication: ANKYLOSING SPONDYLITIS
     Dosage: 150 MG/ML, QMO
     Route: 065

REACTIONS (6)
  - Device issue [Unknown]
  - Pharyngitis streptococcal [Unknown]
  - Inflammation [Unknown]
  - Nasal congestion [Not Recovered/Not Resolved]
  - Arthritis [Unknown]
  - Viral upper respiratory tract infection [Not Recovered/Not Resolved]
